FAERS Safety Report 9257144 (Version 2)
Quarter: 2014Q1

REPORT INFORMATION
  Report Type: Spontaneous
  Country: GB (occurrence: GB)
  Receive Date: 20130426
  Receipt Date: 20140228
  Transmission Date: 20141002
  Serious: Yes (Hospitalization)
  Sender: FDA-Public Use
  Company Number: GB-ROCHE-1218533

PATIENT
  Sex: Male
  Weight: 71.8 kg

DRUGS (1)
  1. MABTHERA [Suspect]
     Indication: PRODUCT USED FOR UNKNOWN INDICATION
     Route: 042
     Dates: start: 201303

REACTIONS (6)
  - Transient ischaemic attack [Recovering/Resolving]
  - Cerebral infarction [Recovered/Resolved]
  - Cervical myelopathy [Recovering/Resolving]
  - Tremor [Recovering/Resolving]
  - Dysarthria [Recovering/Resolving]
  - Paraesthesia [Recovering/Resolving]
